FAERS Safety Report 25342931 (Version 1)
Quarter: 2025Q2

REPORT INFORMATION
  Report Type: Spontaneous
  Country: US (occurrence: None)
  Receive Date: 20250521
  Receipt Date: 20250521
  Transmission Date: 20250717
  Serious: No
  Sender: FDA-CTU
  Company Number: None

PATIENT
  Age: 51 Year
  Sex: Male
  Weight: 106.59 kg

DRUGS (1)
  1. HUMIRA [Suspect]
     Active Substance: ADALIMUMAB
     Indication: Follicular disorder
     Dosage: FREQUENCY : WEEKLY;?
     Route: 058
     Dates: start: 202501

REACTIONS (2)
  - Stomatitis [None]
  - Tooth disorder [None]
